FAERS Safety Report 20015911 (Version 1)
Quarter: 2021Q4

REPORT INFORMATION
  Report Type: Spontaneous
  Country: US (occurrence: None)
  Receive Date: 20211102
  Receipt Date: 20211102
  Transmission Date: 20220303
  Serious: Yes (Hospitalization, Disabling)
  Sender: FDA-Public Use
  Company Number: None

PATIENT
  Age: 28 Year
  Weight: 48 kg

DRUGS (1)
  1. BOTOX [Suspect]
     Active Substance: ONABOTULINUMTOXINA
     Indication: Skin cosmetic procedure
     Route: 030

REACTIONS (9)
  - Feeling abnormal [None]
  - Tinnitus [None]
  - Fatigue [None]
  - Decreased appetite [None]
  - Vertigo [None]
  - Panic attack [None]
  - Anxiety [None]
  - Palpitations [None]
  - Hangover [None]

NARRATIVE: CASE EVENT DATE: 20210827
